FAERS Safety Report 17732282 (Version 1)
Quarter: 2020Q2

REPORT INFORMATION
  Report Type: Spontaneous
  Country: US (occurrence: US)
  Receive Date: 20200501
  Receipt Date: 20200501
  Transmission Date: 20200714
  Serious: Yes (Other)
  Sender: FDA-Public Use
  Company Number: US-SPECGX-T202000854

PATIENT
  Age: 58 Year
  Sex: Male

DRUGS (1)
  1. FENTANYL TRANSDERMAL SYSTEM [Suspect]
     Active Substance: FENTANYL
     Indication: PRODUCT USED FOR UNKNOWN INDICATION
     Dosage: UNK
     Route: 048

REACTIONS (11)
  - Overdose [Unknown]
  - Acute kidney injury [Unknown]
  - Hypertension [Unknown]
  - Incorrect route of product administration [Unknown]
  - Unresponsive to stimuli [Unknown]
  - Drug abuse [Unknown]
  - Tachycardia [Unknown]
  - Transaminases increased [Unknown]
  - Mental status changes [Unknown]
  - Dyspnoea [Recovering/Resolving]
  - Vomiting [Unknown]
